FAERS Safety Report 5389261-2 (Version None)
Quarter: 2007Q3

REPORT INFORMATION
  Report Type: 
  Country: None (occurrence: None)
  Receive Date: 20070717
  Receipt Date: 20070706
  Transmission Date: 20080115
  Serious: Yes (Hospitalization)
  Sender: FDA-Public Use
  Company Number: B0479212A

PATIENT
  Sex: Male

DRUGS (4)
  1. LAMOTRIGINE [Suspect]
     Indication: EPILEPSY
     Dosage: 400MG TWICE PER DAY
     Route: 065
  2. VALPROATE SODIUM [Suspect]
     Indication: EPILEPSY
     Route: 065
  3. UNKNOWN DRUG [Concomitant]
  4. TRILEPTAL [Concomitant]

REACTIONS (10)
  - ASTHENIA [None]
  - BALANCE DISORDER [None]
  - CONVULSION [None]
  - COORDINATION ABNORMAL [None]
  - DRUG INTERACTION [None]
  - DYSSTASIA [None]
  - ERYTHEMA [None]
  - FALL [None]
  - MALAISE [None]
  - MOBILITY DECREASED [None]
